FAERS Safety Report 17122184 (Version 1)
Quarter: 2019Q4

REPORT INFORMATION
  Report Type: Spontaneous
  Country: US (occurrence: US)
  Receive Date: 20191114
  Receipt Date: 20191114
  Transmission Date: 20200122
  Serious: No
  Sender: FDA-Public Use
  Company Number: None

PATIENT
  Age: 54 Year
  Sex: Male

DRUGS (1)
  1. KRYSTEXXA [Suspect]
     Active Substance: PEGLOTICASE
     Dosage: ?          OTHER DOSE:8;OTHER FREQUENCY:UNKNOWN;?
     Route: 042
     Dates: start: 201908, end: 201911

REACTIONS (1)
  - Treatment failure [None]

NARRATIVE: CASE EVENT DATE: 20191114
